FAERS Safety Report 12172611 (Version 2)
Quarter: 2016Q1

REPORT INFORMATION
  Report Type: Report from Study
  Country: MX (occurrence: MX)
  Receive Date: 20160311
  Receipt Date: 20160331
  Transmission Date: 20160526
  Serious: Yes (Other)
  Sender: FDA-Public Use
  Company Number: PHHY2016MX032232

PATIENT
  Sex: Female

DRUGS (3)
  1. ARCOXIA [Concomitant]
     Active Substance: ETORICOXIB
     Indication: MUSCLE CONTRACTIONS INVOLUNTARY
     Dosage: 1 DF, QD (90 MG), 2 MONTHS AGO
     Route: 065
  2. ASPIRIN PROTECT [Concomitant]
     Active Substance: ASPIRIN
     Indication: THROMBOSIS PROPHYLAXIS
     Dosage: 1 DF, QD (100 MG), 2 YEARS AGO
     Route: 065
  3. DIOVAN [Suspect]
     Active Substance: VALSARTAN
     Indication: BLOOD PRESSURE ABNORMAL
     Dosage: 0.5 DF, QD
     Route: 065

REACTIONS (4)
  - Off label use [Not Recovered/Not Resolved]
  - Thyroid disorder [Unknown]
  - Embolism [Unknown]
  - Fall [Unknown]
